FAERS Safety Report 5801381-4 (Version None)
Quarter: 2008Q3

REPORT INFORMATION
  Report Type: 
  Country: None (occurrence: None)
  Receive Date: 20080703
  Receipt Date: 20080703
  Transmission Date: 20090109
  Serious: Yes (Death)
  Sender: FDA-Public Use
  Company Number: None

PATIENT
  Age: 76 Year
  Sex: Male

DRUGS (1)
  1. TARCEVA [Suspect]
     Indication: RECURRENT CANCER
     Dosage: 150 MG DAILY PO
     Route: 048
     Dates: start: 20071023, end: 20071124

REACTIONS (7)
  - EPISTAXIS [None]
  - EXSANGUINATION [None]
  - HYPOTENSION [None]
  - MASS [None]
  - MOUTH HAEMORRHAGE [None]
  - SOFT TISSUE NECROSIS [None]
  - TRISMUS [None]
